FAERS Safety Report 7706608-X (Version None)
Quarter: 2011Q3

REPORT INFORMATION
  Report Type: 
  Country: None (occurrence: None)
  Receive Date: 20110804
  Receipt Date: 20110505
  Transmission Date: 20111222
  Serious: No
  Sender: FDA-Public Use
  Company Number: 2011-06168

PATIENT
  Age: 48 Year
  Sex: Male

DRUGS (1)
  1. RAPAFLO [Suspect]
     Indication: BENIGN PROSTATIC HYPERPLASIA
     Dosage: ONE CAPSULE DAILY, ORAL
     Route: 048
     Dates: start: 20110503

REACTIONS (1)
  - EJACULATION FAILURE [None]
